FAERS Safety Report 9608928 (Version 1)
Quarter: 2013Q4

REPORT INFORMATION
  Report Type: Spontaneous
  Country: US (occurrence: None)
  Receive Date: 20131007
  Receipt Date: 20131007
  Transmission Date: 20140711
  Serious: Yes (Other)
  Sender: FDA-Public Use
  Company Number: None

PATIENT
  Age: 22 Year
  Sex: Male

DRUGS (1)
  1. PROCHLORPERAZINE [Suspect]
     Dosage: INTRAVENOUS.

REACTIONS (3)
  - Dystonia [None]
  - Supraventricular tachycardia [None]
  - Staring [None]
